FAERS Safety Report 7504652-9 (Version None)
Quarter: 2011Q2

REPORT INFORMATION
  Report Type: 
  Country: None (occurrence: None)
  Receive Date: 20110525
  Receipt Date: 20110301
  Transmission Date: 20111010
  Serious: No
  Sender: FDA-Public Use
  Company Number: US-AMGEN-USASP2011011947

PATIENT
  Age: 45 Year
  Sex: Female

DRUGS (4)
  1. OMEPRAZOLE [Concomitant]
     Dosage: 20 MG, UNK
  2. PREDNISONE [Concomitant]
     Dosage: 10 MG, UNK
  3. NPLATE [Suspect]
     Indication: IDIOPATHIC THROMBOCYTOPENIC PURPURA
     Dosage: UNK
     Dates: start: 20101116
  4. CLONAZEPAM [Concomitant]
     Dosage: 1 MG, UNK

REACTIONS (3)
  - MALAISE [None]
  - INSOMNIA [None]
  - CONTUSION [None]
